FAERS Safety Report 5277253-3 (Version None)
Quarter: 2007Q1

REPORT INFORMATION
  Report Type: 
  Country: None (occurrence: None)
  Receive Date: 20070322
  Receipt Date: 20070322
  Transmission Date: 20070707
  Serious: Yes (Other)
  Sender: FDA-Public Use
  Company Number: None

PATIENT
  Age: 62 Year
  Sex: Female
  Weight: 55.3388 kg

DRUGS (12)
  1. TARCEVA [Suspect]
     Indication: BREAST CANCER METASTATIC
     Dosage: 150 MG PO DAILY
     Route: 048
     Dates: start: 20060621, end: 20070227
  2. FEMARA [Suspect]
     Indication: BREAST CANCER METASTATIC
     Dosage: 2.5 MG PO DAILY
     Route: 048
     Dates: start: 20060621, end: 20070227
  3. MORPHINE SULFATE [Concomitant]
  4. APRAZOLAM [Concomitant]
  5. COLACE [Concomitant]
  6. ZOMETA [Concomitant]
  7. IMODIUM [Concomitant]
  8. IBUPROFEN [Concomitant]
  9. PEPCID [Concomitant]
  10. PROCHLORPERAZINE [Concomitant]
  11. ZYRTEC [Concomitant]
  12. HYDROCODONE [Concomitant]

REACTIONS (2)
  - CELLULITIS [None]
  - STAPHYLOCOCCAL BACTERAEMIA [None]
